FAERS Safety Report 6454445-9 (Version None)
Quarter: 2009Q4

REPORT INFORMATION
  Report Type: 
  Country: None (occurrence: None)
  Receive Date: 20091124
  Receipt Date: 20091113
  Transmission Date: 20100525
  Serious: Yes (Disabling, Other)
  Sender: FDA-Public Use
  Company Number: PHHY2008JP10886

PATIENT
  Sex: Male
  Weight: 3 kg

DRUGS (2)
  1. DIOVAN [Suspect]
     Indication: HYPERTENSION
     Dosage: MATERNAL DOSE: 80 MG/DAY
     Route: 064
     Dates: start: 20071009, end: 20071201
  2. DIOVAN [Suspect]
     Dosage: MATERNAL DOSE: 120 MG/DAY
     Route: 064
     Dates: start: 20071202

REACTIONS (4)
  - DRUG EXPOSURE DURING PREGNANCY [None]
  - OLIGOHYDRAMNIOS [None]
  - RENAL FAILURE CHRONIC [None]
  - RENAL HYPOPLASIA [None]
